FAERS Safety Report 13150627 (Version 5)
Quarter: 2017Q2

REPORT INFORMATION
  Report Type: Spontaneous
  Country: US (occurrence: US)
  Receive Date: 20170125
  Receipt Date: 20170620
  Transmission Date: 20170830
  Serious: Yes (Other)
  Sender: FDA-Public Use
  Company Number: US-BRISTOL-MYERS SQUIBB COMPANY-BMS-2017-002514

PATIENT
  Sex: Male
  Weight: 94.34 kg

DRUGS (1)
  1. COUMADIN [Suspect]
     Active Substance: WARFARIN SODIUM
     Indication: ATRIAL FIBRILLATION
     Dosage: 7.5 MG, UNK
     Route: 065
     Dates: start: 2005

REACTIONS (5)
  - Drug dispensing error [Unknown]
  - International normalised ratio fluctuation [Unknown]
  - Adverse event [Unknown]
  - Diabetes mellitus [Unknown]
  - Hypoglycaemia [Unknown]
